FAERS Safety Report 4859718-9 (Version None)
Quarter: 2005Q4

REPORT INFORMATION
  Report Type: 
  Country: None (occurrence: None)
  Receive Date: 20051214
  Receipt Date: 20051205
  Transmission Date: 20060501
  Serious: Yes (Hospitalization)
  Sender: FDA-Public Use
  Company Number: WAES 0508USA04022

PATIENT
  Age: 66 Year
  Sex: Male
  Weight: 87.9978 kg

DRUGS (6)
  1. HYZAAR [Suspect]
     Indication: METABOLIC SYNDROME
     Dosage: 1 TABLET/DAILY/PO
     Route: 048
     Dates: start: 20040813
  2. TARKA [Suspect]
     Indication: METABOLIC SYNDROME
     Dosage: 1 TABLET/DAILY/PO
     Route: 048
     Dates: start: 20040813, end: 20050802
  3. ASPIRIN [Concomitant]
  4. CLONIDINE [Concomitant]
  5. FENOFIBRATE [Concomitant]
  6. NIACIN [Concomitant]

REACTIONS (4)
  - CONDITION AGGRAVATED [None]
  - CORONARY ARTERY DISEASE [None]
  - DIZZINESS [None]
  - SYNCOPE [None]
